FAERS Safety Report 20447283 (Version 1)
Quarter: 2022Q1

REPORT INFORMATION
  Report Type: Spontaneous
  Country: JP (occurrence: JP)
  Receive Date: 20220209
  Receipt Date: 20220209
  Transmission Date: 20220424
  Serious: Yes (Life-Threatening)
  Sender: FDA-Public Use
  Company Number: JP-BEH-2009020701

PATIENT
  Age: 59 Year
  Sex: Male
  Weight: 70 kg

DRUGS (9)
  1. ALBUMINAR-5 [Suspect]
     Active Substance: ALBUMIN HUMAN
     Indication: Haemorrhage
     Dosage: 750 ML INTRAVENOUS DRIP
     Route: 041
     Dates: start: 20090902, end: 20090902
  2. ALBUMINAR-5 [Suspect]
     Active Substance: ALBUMIN HUMAN
     Indication: Volume blood decreased
  3. PROPOFOL 1% FRESENIUS [Concomitant]
     Indication: Anaesthesia procedure
     Route: 042
     Dates: start: 20090902
  4. EPHEDRINE [Concomitant]
     Active Substance: EPHEDRINE
     Indication: Anaesthesia procedure
     Route: 042
     Dates: start: 20090902
  5. ULTIVA [Concomitant]
     Active Substance: REMIFENTANIL HYDROCHLORIDE
     Indication: Anaesthesia procedure
     Route: 042
     Dates: start: 20090902
  6. RCC (red blood cell concentrate) [Concomitant]
     Dosage: 2520 ML
     Route: 042
     Dates: start: 20090902
  7. SEVOFLURANE [Concomitant]
     Active Substance: SEVOFLURANE
     Indication: Anaesthesia procedure
     Dates: start: 20090902
  8. ROCURONIUM BROMIDE [Concomitant]
     Active Substance: ROCURONIUM BROMIDE
     Indication: Anaesthesia procedure
     Route: 042
     Dates: start: 20090902
  9. FRESH FROZEN PLASMA [Concomitant]
     Active Substance: HUMAN PLASMA
     Route: 042
     Dates: start: 20090902

REACTIONS (6)
  - Anaphylactic reaction [Recovered/Resolved]
  - Blood pressure decreased [Recovered/Resolved]
  - Airway peak pressure increased [Recovered/Resolved]
  - Respiratory failure [Recovered/Resolved]
  - Oxygen saturation decreased [Recovered/Resolved]
  - Flushing [Recovered/Resolved]

NARRATIVE: CASE EVENT DATE: 20090902
